FAERS Safety Report 9842450 (Version 1)
Quarter: 2014Q1

REPORT INFORMATION
  Report Type: Spontaneous
  Country: US (occurrence: US)
  Receive Date: 20140124
  Receipt Date: 20140124
  Transmission Date: 20141002
  Serious: No
  Sender: FDA-Public Use
  Company Number: US-GILEAD-2011-0038623

PATIENT
  Sex: Female

DRUGS (4)
  1. RANEXA [Suspect]
     Indication: ANGINA PECTORIS
  2. METOPROLOL [Concomitant]
  3. SIMVASTATIN [Concomitant]
  4. ASPIRIN [Concomitant]

REACTIONS (1)
  - Discomfort [Unknown]
